FAERS Safety Report 8293012-1 (Version None)
Quarter: 2012Q2

REPORT INFORMATION
  Report Type: 
  Country: None (occurrence: None)
  Receive Date: 20120417
  Receipt Date: 20111003
  Transmission Date: 20120825
  Serious: No
  Sender: FDA-Public Use
  Company Number: US-ASTRAZENECA-2011SE59088

PATIENT
  Age: 38 Year
  Sex: Male
  Weight: 79.4 kg

DRUGS (2)
  1. NEXIUM [Suspect]
     Indication: GASTROOESOPHAGEAL REFLUX DISEASE
     Route: 048
     Dates: start: 20110922, end: 20110930
  2. LIPITOR [Concomitant]

REACTIONS (3)
  - DEPRESSION [None]
  - ANXIETY [None]
  - AGGRESSION [None]
